FAERS Safety Report 4544561-0 (Version None)
Quarter: 2005Q1

REPORT INFORMATION
  Report Type: 
  Country: None (occurrence: None)
  Receive Date: 20050104
  Receipt Date: 20041220
  Transmission Date: 20050727
  Serious: Yes (Death)
  Sender: FDA-Public Use
  Company Number: 2004S1003749

PATIENT
  Age: 54 Year
  Sex: Female

DRUGS (16)
  1. CLOZAPINE [Suspect]
     Dosage: 100MG Q 4PM  + 200MG HS, ORAL
     Route: 048
     Dates: start: 20041101
  2. ACETAMINOPHEN [Concomitant]
  3. ASPIRIN [Concomitant]
  4. BISACODY [Concomitant]
  5. GLYCERIN [Concomitant]
  6. FERROUS SULFATE TAB [Concomitant]
  7. FLEET PHOSPHO-SODA [Concomitant]
  8. GLYBURIDE [Concomitant]
  9. LEVOTHYROXINE SODIUM [Concomitant]
  10. LITHIUM CARBONATE [Concomitant]
  11. METFORMIN HCL [Concomitant]
  12. MAGNESIUM HYDROXIDE TAB [Concomitant]
  13. INSULIN R (PRN) [Concomitant]
  14. SODIUM POLYSTYRENE SULFONATE [Concomitant]
  15. HUMULIN 70/30 [Concomitant]
  16. RANITIDINE [Concomitant]

REACTIONS (1)
  - DEATH [None]
